FAERS Safety Report 4333639-2 (Version None)
Quarter: 2004Q2

REPORT INFORMATION
  Report Type: 
  Country: None (occurrence: None)
  Receive Date: 20040406
  Receipt Date: 20040406
  Transmission Date: 20050107
  Serious: Yes (Other)
  Sender: FDA-Public Use
  Company Number: None

PATIENT
  Age: 24 Year
  Sex: Female
  Weight: 75 kg

DRUGS (1)
  1. PHENERGAN HCL [Suspect]
     Indication: MIGRAINE
     Dosage: 25 MG IV-PUSH
     Route: 042
     Dates: start: 20040319

REACTIONS (5)
  - AGITATION [None]
  - DIZZINESS [None]
  - DRY MOUTH [None]
  - DRY THROAT [None]
  - HEART RATE DECREASED [None]
